FAERS Safety Report 4442760-X (Version None)
Quarter: 2004Q3

REPORT INFORMATION
  Report Type: 
  Country: None (occurrence: None)
  Receive Date: 20040903
  Receipt Date: 20040714
  Transmission Date: 20050211
  Serious: Yes (Other)
  Sender: FDA-Public Use
  Company Number: 2004UW12296

PATIENT
  Age: 80 Year
  Sex: Female
  Weight: 58.9676 kg

DRUGS (3)
  1. CRESTOR [Suspect]
     Indication: BLOOD CHOLESTEROL INCREASED
     Dosage: 10 MG PO
     Route: 048
     Dates: start: 20040601
  2. ANTIHYPERTENSIVE [Suspect]
  3. MICARDIS [Concomitant]

REACTIONS (2)
  - BALANCE DISORDER [None]
  - ORTHOSTATIC HYPOTENSION [None]
